FAERS Safety Report 14412660 (Version 1)
Quarter: 2018Q1

REPORT INFORMATION
  Report Type: Spontaneous
  Country: US (occurrence: US)
  Receive Date: 20180119
  Receipt Date: 20180119
  Transmission Date: 20180509
  Serious: Yes (Hospitalization)
  Sender: FDA-Public Use
  Company Number: None

PATIENT
  Age: 61 Year
  Sex: Female
  Weight: 56.2 kg

DRUGS (7)
  1. INSULIN NPH- INSULIN REGULAR [Concomitant]
  2. BRILINTA [Suspect]
     Active Substance: TICAGRELOR
     Indication: STENT PLACEMENT
     Dosage: RECENT
     Route: 048
  3. ATENOLOLO [Concomitant]
     Active Substance: ATENOLOL
  4. METFORMIN [Concomitant]
     Active Substance: METFORMIN HYDROCHLORIDE
  5. INTEGRILIN [Concomitant]
     Active Substance: EPTIFIBATIDE
  6. HEPARIN [Concomitant]
     Active Substance: HEPARIN SODIUM
  7. AMLODIPINE [Concomitant]
     Active Substance: AMLODIPINE BESYLATE

REACTIONS (2)
  - Gastric ulcer [None]
  - Anaemia [None]

NARRATIVE: CASE EVENT DATE: 20170905
